FAERS Safety Report 8024052-5 (Version None)
Quarter: 2012Q1

REPORT INFORMATION
  Report Type: 
  Country: None (occurrence: None)
  Receive Date: 20120105
  Receipt Date: 20111227
  Transmission Date: 20120608
  Serious: Yes (Death, Hospitalization, Disabling, Other)
  Sender: FDA-Public Use
  Company Number: JP-JNJFOC-20091207203

PATIENT
  Sex: Male
  Weight: 44 kg

DRUGS (8)
  1. ZERIT [Concomitant]
     Indication: HIV INFECTION
     Route: 048
     Dates: start: 20060823, end: 20090304
  2. NORVIR [Concomitant]
     Indication: HIV INFECTION
     Route: 048
     Dates: start: 20070924, end: 20100104
  3. MS CONTIN [Concomitant]
     Indication: NEURALGIA
     Route: 048
     Dates: start: 20090619, end: 20100104
  4. EPIVIR [Concomitant]
     Indication: HIV INFECTION
     Route: 048
     Dates: start: 20060823, end: 20100104
  5. NOVACT-M [Concomitant]
     Indication: FACTOR IX DEFICIENCY
     Dosage: 0 - 4 PER DAY
     Route: 050
     Dates: start: 20070401, end: 20100104
  6. PREZISTA [Suspect]
     Indication: HIV INFECTION
     Route: 048
     Dates: start: 20070924, end: 20100104
  7. ISENTRESS [Concomitant]
     Indication: HIV INFECTION
     Route: 048
     Dates: start: 20080401, end: 20100104
  8. VICCLOX [Concomitant]
     Indication: HIV INFECTION
     Route: 048
     Dates: start: 20070924

REACTIONS (4)
  - BRAIN STEM HAEMORRHAGE [None]
  - OESOPHAGEAL ULCER [None]
  - PNEUMONIA [None]
  - OESOPHAGEAL OBSTRUCTION [None]
